FAERS Safety Report 10336843 (Version 1)
Quarter: 2014Q3

REPORT INFORMATION
  Report Type: Spontaneous
  Country: SI (occurrence: SI)
  Receive Date: 20140723
  Receipt Date: 20140723
  Transmission Date: 20150326
  Serious: Yes (Other)
  Sender: FDA-Public Use
  Company Number: SI-GLAXOSMITHKLINE-B1017040A

PATIENT
  Age: 76 Year
  Sex: Female

DRUGS (1)
  1. LAPATINIB [Suspect]
     Active Substance: LAPATINIB
     Indication: HER-2 POSITIVE BREAST CANCER
     Route: 048
     Dates: start: 20130124, end: 20130204

REACTIONS (1)
  - Enanthema [Unknown]

NARRATIVE: CASE EVENT DATE: 20130204
